FAERS Safety Report 6736961-5 (Version None)
Quarter: 2010Q2

REPORT INFORMATION
  Report Type: 
  Country: None (occurrence: None)
  Receive Date: 20100523
  Receipt Date: 20100520
  Transmission Date: 20101027
  Serious: Yes (Hospitalization)
  Sender: FDA-Public Use
  Company Number: US-JNJFOC-20100508263

PATIENT
  Age: 9 Month
  Weight: 8.16 kg

DRUGS (4)
  1. CONCENTRATED TYLENOL INFANT DROPS [Suspect]
     Indication: TEETHING
     Dosage: ^RECOMMENDED AMOUNT^ EVERY 8 HOURS
     Route: 048
  2. CONCENTRATED TYLENOL INFANT DROPS [Suspect]
     Indication: PYREXIA
     Dosage: ^RECOMMENDED AMOUNT^ EVERY 8 HOURS
     Route: 048
  3. CONCENTRATED MOTRIN INFANTS DROPS [Suspect]
     Route: 065
  4. CONCENTRATED MOTRIN INFANTS DROPS [Suspect]
     Indication: DRUG USE FOR UNKNOWN INDICATION
     Route: 065

REACTIONS (3)
  - ADVERSE EVENT [None]
  - HOSPITALISATION [None]
  - PRODUCT QUALITY ISSUE [None]
